FAERS Safety Report 7967512-5 (Version None)
Quarter: 2011Q4

REPORT INFORMATION
  Report Type: 
  Country: None (occurrence: None)
  Receive Date: 20111209
  Receipt Date: 20110610
  Transmission Date: 20120403
  Serious: No
  Sender: FDA-Public Use
  Company Number: US-GLAXOSMITHKLINE-B0726584A

PATIENT
  Age: 45 Year
  Sex: Male

DRUGS (1)
  1. AVANDAMET [Suspect]
     Indication: DIABETES MELLITUS
     Route: 048
     Dates: start: 19990101, end: 20050101

REACTIONS (3)
  - CARDIAC DISORDER [None]
  - CHEST DISCOMFORT [None]
  - HEART RATE IRREGULAR [None]
